FAERS Safety Report 5192209-7 (Version None)
Quarter: 2006Q4

REPORT INFORMATION
  Report Type: 
  Country: None (occurrence: None)
  Receive Date: 20061220
  Receipt Date: 20061127
  Transmission Date: 20070319
  Serious: Yes (Other)
  Sender: FDA-Public Use
  Company Number: 2006147056

PATIENT
  Age: 70 Year
  Sex: Male

DRUGS (5)
  1. TOLTERODINE TARTRATE [Suspect]
     Indication: HYPERTONIC BLADDER
     Dosage: 4 MG, ORAL
     Route: 048
     Dates: start: 20061124, end: 20061124
  2. TAMSULOSIN HCL [Concomitant]
  3. ADALAT [Concomitant]
  4. MICARDIS [Concomitant]
  5. PAXIL [Concomitant]

REACTIONS (3)
  - BLOOD PRESSURE INADEQUATELY CONTROLLED [None]
  - BLOOD PRESSURE INCREASED [None]
  - VISION BLURRED [None]
